FAERS Safety Report 8365613-3 (Version None)
Quarter: 2012Q2

REPORT INFORMATION
  Report Type: 
  Country: None (occurrence: None)
  Receive Date: 20120516
  Receipt Date: 20120514
  Transmission Date: 20120825
  Serious: Yes (Other)
  Sender: FDA-Public Use
  Company Number: DE-MERCK-1205DEU00050

PATIENT
  Age: 80 Year
  Sex: Female

DRUGS (1)
  1. FOSAMAX PLUS D [Suspect]
     Indication: OSTEOPOROSIS
     Route: 048

REACTIONS (5)
  - ALOPECIA [None]
  - PALPITATIONS [None]
  - DIZZINESS [None]
  - FEMORAL NECK FRACTURE [None]
  - FALL [None]
